FAERS Safety Report 17763835 (Version 3)
Quarter: 2020Q3

REPORT INFORMATION
  Report Type: Report from Study
  Country: BE (occurrence: BE)
  Receive Date: 20200510
  Receipt Date: 20200929
  Transmission Date: 20201102
  Serious: Yes (Hospitalization)
  Sender: FDA-Public Use
  Company Number: BE-TAKEDA-2020TUS021564

PATIENT
  Sex: Male

DRUGS (1)
  1. VEDOLIZUMAB [Suspect]
     Active Substance: VEDOLIZUMAB
     Indication: INFLAMMATORY BOWEL DISEASE
     Dosage: UNK
     Route: 042
     Dates: start: 20170616

REACTIONS (3)
  - Renal colic [Recovered/Resolved]
  - Pyelonephritis acute [Recovered/Resolved]
  - Hydronephrosis [Recovered/Resolved]

NARRATIVE: CASE EVENT DATE: 20200210
